FAERS Safety Report 9587862 (Version 1)
Quarter: 2013Q4

REPORT INFORMATION
  Report Type: Spontaneous
  Country: GB (occurrence: GB)
  Receive Date: 20131003
  Receipt Date: 20131003
  Transmission Date: 20140711
  Serious: Yes (Disabling, Other)
  Sender: FDA-Public Use
  Company Number: GB-ACTAVIS-2013-17414

PATIENT
  Age: 13 Year
  Sex: Female

DRUGS (3)
  1. HYDROCORTISONE (UNKNOWN) [Suspect]
     Indication: DERMATITIS ATOPIC
     Dosage: UNK
     Route: 061
  2. BETNOVATE [Suspect]
     Indication: DERMATITIS ATOPIC
     Dosage: UNK
     Route: 061
  3. EUMOVATE [Suspect]
     Indication: DERMATITIS ATOPIC
     Dosage: UNK
     Route: 061

REACTIONS (2)
  - Eczema [Not Recovered/Not Resolved]
  - Drug tolerance [Not Recovered/Not Resolved]
